FAERS Safety Report 8084689-4 (Version None)
Quarter: 2012Q1

REPORT INFORMATION
  Report Type: 
  Country: None (occurrence: None)
  Receive Date: 20120128
  Receipt Date: 20110311
  Transmission Date: 20120608
  Serious: No
  Sender: FDA-Public Use
  Company Number: US-ABBOTT-11P-163-0710925-00

PATIENT
  Age: 72 Year
  Sex: Female

DRUGS (17)
  1. METOPROLOL TARTRATE [Concomitant]
     Indication: HYPERTENSION
  2. HYDROCODONE BITARTRATE [Concomitant]
     Indication: PAIN
  3. HUMIRA [Suspect]
     Indication: RHEUMATOID ARTHRITIS
     Dates: start: 20091101
  4. POTASSIUM [Concomitant]
     Indication: MINERAL SUPPLEMENTATION
  5. GLIMETIARIDE [Concomitant]
     Indication: DIABETES MELLITUS
  6. CLONIDINE [Concomitant]
     Indication: BLOOD PRESSURE
  7. LIPITOR [Concomitant]
     Indication: BLOOD CHOLESTEROL INCREASED
     Dosage: AT BEDTIME
  8. CALCIUM W/VITAMIN D [Concomitant]
     Indication: PRODUCT USED FOR UNKNOWN INDICATION
  9. SERTRALINE HYDROCHLORIDE [Concomitant]
     Indication: ANTIDEPRESSANT THERAPY
  10. TEMAZEPAM [Concomitant]
     Indication: INSOMNIA
  11. ZETIA [Concomitant]
     Indication: BLOOD CHOLESTEROL INCREASED
  12. FOLTEX [Concomitant]
     Indication: VITAMIN SUPPLEMENTATION
  13. ATACAN [Concomitant]
     Indication: HYPERTENSION
  14. AMIODITINE [Concomitant]
     Indication: BLOOD PRESSURE
     Dosage: AT BEDTME
  15. METOPROLOL TARTRATE [Concomitant]
     Indication: ARRHYTHMIA
  16. NEXIUM [Concomitant]
     Indication: GASTROOESOPHAGEAL REFLUX DISEASE
     Dosage: ONE AT NOON
  17. HYDROCHLOROTHIAZIDE [Concomitant]
     Indication: HYPERTENSION

REACTIONS (2)
  - RASH [None]
  - RASH PAPULAR [None]
